FAERS Safety Report 8423184-7 (Version None)
Quarter: 2012Q2

REPORT INFORMATION
  Report Type: 
  Country: None (occurrence: None)
  Receive Date: 20120608
  Receipt Date: 20120605
  Transmission Date: 20120825
  Serious: Yes (Hospitalization, Other)
  Sender: FDA-Public Use
  Company Number: US-PFIZER INC-2012135241

PATIENT
  Sex: Male
  Weight: 74.83 kg

DRUGS (3)
  1. KLONOPIN [Concomitant]
     Indication: TOURETTE'S DISORDER
     Dosage: 1 MG, 1X/DAY
  2. CELEBREX [Suspect]
     Indication: ADJUVANT THERAPY
     Dosage: 20 MG, 1X/DAY
     Route: 048
     Dates: start: 20120516, end: 20120516
  3. CELEBREX [Suspect]
     Indication: ANTIINFLAMMATORY THERAPY

REACTIONS (4)
  - URTICARIA [None]
  - WHITE BLOOD CELL COUNT INCREASED [None]
  - RASH GENERALISED [None]
  - PRURITUS [None]
